FAERS Safety Report 6639946-2 (Version None)
Quarter: 2010Q1

REPORT INFORMATION
  Report Type: 
  Country: None (occurrence: None)
  Receive Date: 20100318
  Receipt Date: 20100310
  Transmission Date: 20100710
  Serious: Yes (Other)
  Sender: FDA-Public Use
  Company Number: CHPA2010US04819

PATIENT
  Age: 30 Year
  Sex: Male
  Weight: 77.098 kg

DRUGS (1)
  1. THRIVE 4 MG [Suspect]
     Indication: SMOKING CESSATION THERAPY
     Dosage: 1 PIECE EVERY 1 TO 2 HOUR
     Route: 048
     Dates: start: 20100201, end: 20100309

REACTIONS (5)
  - ANXIETY [None]
  - HALLUCINATION, AUDITORY [None]
  - HEART RATE INCREASED [None]
  - INSOMNIA [None]
  - PARANOIA [None]
